FAERS Safety Report 10162369 (Version 1)
Quarter: 2014Q2

REPORT INFORMATION
  Report Type: Spontaneous
  Country: US (occurrence: US)
  Receive Date: 20140509
  Receipt Date: 20140509
  Transmission Date: 20141212
  Serious: Yes (Other)
  Sender: FDA-Public Use
  Company Number: US-BAYER-2014-067756

PATIENT
  Age: 37 Year
  Sex: Female
  Weight: 99.77 kg

DRUGS (6)
  1. YAZ [Suspect]
  2. GIANVI [Suspect]
  3. DEXAMETHASONE W/TOBRAMYCIN [Concomitant]
     Dosage: UNK
     Dates: start: 20120920
  4. CEPHALEXIN [Concomitant]
     Dosage: 500 MG, UNK
     Dates: start: 20120920
  5. LIRAGLUTIDE [Concomitant]
     Dosage: 6 MG, QD
  6. LORTAB [Concomitant]
     Indication: PAIN
     Dosage: 5/500 MG, 1 TAB BY MOUTH EVERY 4-6 AS NEEDED
     Route: 048

REACTIONS (2)
  - Deep vein thrombosis [None]
  - Gallbladder disorder [None]
